FAERS Safety Report 9009665 (Version 2)
Quarter: 2013Q1

REPORT INFORMATION
  Report Type: Spontaneous
  Country: BR (occurrence: BR)
  Receive Date: 20130110
  Receipt Date: 20130123
  Transmission Date: 20140127
  Serious: Yes (Other)
  Sender: FDA-Public Use
  Company Number: BR-PFIZER INC-2012331146

PATIENT
  Age: 47 Year
  Sex: Female
  Weight: 95 kg

DRUGS (4)
  1. LYRICA [Suspect]
     Indication: FIBROMYALGIA
     Dosage: 75 MG, 1X/DAY
     Route: 048
     Dates: start: 20121214, end: 20121221
  2. BUPROPION [Concomitant]
     Indication: DEPRESSION
     Dosage: UNK
     Dates: start: 2011
  3. CITALOPRAM [Concomitant]
     Indication: DEPRESSION
     Dosage: UNK
     Dates: start: 2011
  4. RIVOTRIL [Concomitant]
     Indication: DEPRESSION
     Dosage: UNK
     Dates: start: 2002

REACTIONS (10)
  - Syncope [Unknown]
  - Confusional state [Unknown]
  - Suffocation feeling [Unknown]
  - Drug ineffective [Unknown]
  - Insomnia [Not Recovered/Not Resolved]
  - Somnolence [Not Recovered/Not Resolved]
  - Malaise [Not Recovered/Not Resolved]
  - Vertigo [Unknown]
  - Headache [Unknown]
  - Pruritus generalised [Unknown]
